FAERS Safety Report 15371421 (Version 1)
Quarter: 2018Q3

REPORT INFORMATION
  Report Type: Spontaneous
  Country: NL (occurrence: NL)
  Receive Date: 20180911
  Receipt Date: 20180911
  Transmission Date: 20181010
  Serious: Yes (Other)
  Sender: FDA-Public Use
  Company Number: PHHY2018NL095757

PATIENT
  Sex: Female
  Weight: 82 kg

DRUGS (1)
  1. METOPROLOL. [Suspect]
     Active Substance: METOPROLOL
     Indication: LONG QT SYNDROME
     Dosage: 50 MG, (12 HOUR)
     Route: 065
     Dates: start: 2016, end: 2018

REACTIONS (1)
  - Depression suicidal [Recovered/Resolved]
